FAERS Safety Report 8509579-1 (Version None)
Quarter: 2012Q3

REPORT INFORMATION
  Report Type: 
  Country: None (occurrence: None)
  Receive Date: 20120713
  Receipt Date: 20120705
  Transmission Date: 20120928
  Serious: Yes (Hospitalization)
  Sender: FDA-Public Use
  Company Number: JP-ASTRAZENECA-2012SE46011

PATIENT
  Sex: Female

DRUGS (1)
  1. PULMICORT [Suspect]
     Dosage: 200 MICRO G TWO DOSAGE FORM DAILY
     Route: 055

REACTIONS (1)
  - ASTHMA [None]
